FAERS Safety Report 6656008-9 (Version None)
Quarter: 2010Q1

REPORT INFORMATION
  Report Type: 
  Country: None (occurrence: None)
  Receive Date: 20100326
  Receipt Date: 20100326
  Transmission Date: 20100710
  Serious: Yes (Other)
  Sender: FDA-Public Use
  Company Number: None

PATIENT
  Sex: Female
  Weight: 45.3597 kg

DRUGS (2)
  1. FENTANYL-25 [Suspect]
     Indication: BACK PAIN
     Dosage: 25 MG 48 HRS. SKIN
     Dates: start: 20100222
  2. FENTANYL-25 [Suspect]
     Indication: BACK PAIN
     Dosage: 25 MG 48 HRS. SKIN
     Dates: start: 20100311

REACTIONS (3)
  - DRUG INEFFECTIVE [None]
  - PRODUCT ADHESION ISSUE [None]
  - URTICARIA [None]
